FAERS Safety Report 4408470-X (Version None)
Quarter: 2004Q3

REPORT INFORMATION
  Report Type: 
  Country: None (occurrence: None)
  Receive Date: 20040723
  Receipt Date: 20040719
  Transmission Date: 20050211
  Serious: Yes (Hospitalization)
  Sender: FDA-Public Use
  Company Number: FRWYE921621JUL04

PATIENT
  Sex: Female

DRUGS (1)
  1. EFFEXOR [Suspect]
     Dosage: 37.5 MG 2X PER 1 DAY ORAL
     Route: 048
     Dates: start: 20040709, end: 20040709

REACTIONS (2)
  - HYPERSENSITIVITY [None]
  - OEDEMA [None]
